FAERS Safety Report 7745757-7 (Version None)
Quarter: 2011Q3

REPORT INFORMATION
  Report Type: 
  Country: None (occurrence: None)
  Receive Date: 20110913
  Receipt Date: 20110905
  Transmission Date: 20111222
  Serious: Yes (Other)
  Sender: FDA-Public Use
  Company Number: AR-AMGEN-ARGSP2011045720

PATIENT
  Sex: Female

DRUGS (1)
  1. ENBREL [Suspect]
     Indication: RHEUMATOID ARTHRITIS
     Dosage: 25 MG, 2X/WEEK
     Dates: start: 20060101, end: 20090101

REACTIONS (4)
  - HYPOKINESIA [None]
  - JOINT DISLOCATION [None]
  - ARTHRITIS [None]
  - CONDITION AGGRAVATED [None]
